FAERS Safety Report 11685216 (Version 1)
Quarter: 2015Q4

REPORT INFORMATION
  Report Type: Spontaneous
  Country: US (occurrence: None)
  Receive Date: 20151029
  Receipt Date: 20151029
  Transmission Date: 20160304
  Serious: No
  Sender: FDA-Public Use
  Company Number: None

PATIENT
  Age: 64 Year
  Sex: Female

DRUGS (2)
  1. SODIUM CHLROIDE [Concomitant]
  2. TOBRAMYCIN. [Suspect]
     Active Substance: TOBRAMYCIN
     Indication: BRONCHIECTASIS
     Dosage: NEB
     Dates: start: 20150831, end: 20150918

REACTIONS (1)
  - Death [None]

NARRATIVE: CASE EVENT DATE: 20150918
